FAERS Safety Report 13927980 (Version 1)
Quarter: 2017Q3

REPORT INFORMATION
  Report Type: Spontaneous
  Country: FR (occurrence: FR)
  Receive Date: 20170901
  Receipt Date: 20170901
  Transmission Date: 20171127
  Serious: Yes (Life-Threatening, Hospitalization)
  Sender: FDA-Public Use
  Company Number: FR-ELI_LILLY_AND_COMPANY-FR201708011171

PATIENT
  Age: 52 Year
  Sex: Male
  Weight: 93.8 kg

DRUGS (9)
  1. METFORMINE [Concomitant]
     Active Substance: METFORMIN HYDROCHLORIDE
     Dosage: 1 DF, EACH AFTERNOON
     Route: 065
  2. TOPALGIC LP [Concomitant]
     Active Substance: TRAMADOL
     Dosage: 1 DF, EACH MORNING
     Route: 065
  3. DEPAKOTE [Concomitant]
     Active Substance: DIVALPROEX SODIUM
     Dosage: 2 DF, EACH EVENING
     Route: 065
  4. METFORMINE [Concomitant]
     Active Substance: METFORMIN HYDROCHLORIDE
     Dosage: 1 DF, EACH EVENING
     Route: 065
  5. INEXIUM                            /01479302/ [Concomitant]
     Active Substance: ESOMEPRAZOLE MAGNESIUM
     Dosage: 1 DF, EACH EVENING
     Route: 065
  6. TOPALGIC LP [Concomitant]
     Active Substance: TRAMADOL
     Dosage: 1 DF, EACH EVENING
     Route: 065
  7. DEPAKOTE [Concomitant]
     Active Substance: DIVALPROEX SODIUM
     Dosage: 1 DF, EACH MORNING
     Route: 065
  8. METFORMINE [Concomitant]
     Active Substance: METFORMIN HYDROCHLORIDE
     Dosage: 1 DF, EACH MORNING
     Route: 065
  9. ZYPADHERA [Suspect]
     Active Substance: OLANZAPINE PAMOATE
     Indication: DELUSION
     Dosage: 405 MG, EVERY 28 DAYS
     Route: 030
     Dates: start: 20170202

REACTIONS (10)
  - Hypertension [Unknown]
  - Hyperhidrosis [Unknown]
  - Confusional state [Unknown]
  - Off label use [Unknown]
  - Heart rate increased [Unknown]
  - Post-injection delirium sedation syndrome [Unknown]
  - Blood glucose increased [Unknown]
  - Dizziness [Unknown]
  - Akathisia [Unknown]
  - Pallor [Unknown]

NARRATIVE: CASE EVENT DATE: 20170202
